FAERS Safety Report 10785221 (Version 1)
Quarter: 2015Q1

REPORT INFORMATION
  Report Type: Spontaneous
  Country: US (occurrence: US)
  Receive Date: 20150211
  Receipt Date: 20150211
  Transmission Date: 20150721
  Serious: Yes (Other)
  Sender: FDA-Public Use
  Company Number: US-SUN PHARMACEUTICAL INDUSTRIES LTD-2015SUN00345

PATIENT

DRUGS (4)
  1. MIRTAZAPINE 45 MG TABLET [Suspect]
     Active Substance: MIRTAZAPINE
     Dosage: 45 MG, AT BEDTIME AFTER JUN/2012
     Route: 065
  2. VENLAFAXINE [Suspect]
     Active Substance: VENLAFAXINE HYDROCHLORIDE
     Indication: BIPOLAR DISORDER
     Dosage: 225 MG, QD
     Route: 065
  3. MIRTAZAPINE 45 MG TABLET [Suspect]
     Active Substance: MIRTAZAPINE
     Indication: BIPOLAR DISORDER
     Dosage: 45 MG, AT BEDTIME, DURING HOSPITALIZATION
     Route: 065
     Dates: start: 200611
  4. ARIPIPRAZOLE. [Suspect]
     Active Substance: ARIPIPRAZOLE
     Indication: BIPOLAR DISORDER
     Dosage: 30 MG, QD
     Route: 065

REACTIONS (2)
  - Somnambulism [Recovered/Resolved]
  - Akathisia [Recovered/Resolved]
